FAERS Safety Report 5920049-7 (Version None)
Quarter: 2008Q4

REPORT INFORMATION
  Report Type: 
  Country: None (occurrence: None)
  Receive Date: 20081014
  Receipt Date: 20081006
  Transmission Date: 20090506
  Serious: Yes (Death)
  Sender: FDA-Public Use
  Company Number: CHPA2008US16901

PATIENT
  Age: 2 Year

DRUGS (1)
  1. PSEUDOEPHEDRINE HCL [Suspect]

REACTIONS (1)
  - INCORRECT DOSE ADMINISTERED [None]
